FAERS Safety Report 14964103 (Version 2)
Quarter: 2018Q3

REPORT INFORMATION
  Report Type: Spontaneous
  Country: DE (occurrence: DE)
  Receive Date: 20180601
  Receipt Date: 20180706
  Transmission Date: 20181010
  Serious: Yes (Other)
  Sender: FDA-Public Use
  Company Number: DE-FRESENIUS KABI-FK201806136

PATIENT

DRUGS (4)
  1. VORINOSTAT [Suspect]
     Active Substance: VORINOSTAT
     Indication: EWING^S SARCOMA
     Route: 048
  2. PONATINIB [Suspect]
     Active Substance: PONATINIB
     Indication: EWING^S SARCOMA
     Route: 048
  3. IDARUBICIN [Suspect]
     Active Substance: IDARUBICIN
     Indication: EWING^S SARCOMA
     Dosage: 5,5 MG/M2
     Route: 048
  4. PACLITAXEL (MANUFACTURER UNKNOWN) [Suspect]
     Active Substance: PACLITAXEL
     Indication: EWING^S SARCOMA
     Route: 042

REACTIONS (5)
  - Product use in unapproved indication [Unknown]
  - Malignant neoplasm progression [Unknown]
  - Drug administered to patient of inappropriate age [Unknown]
  - Neutropenia [Unknown]
  - Lymphopenia [Unknown]
